FAERS Safety Report 19656737 (Version 1)
Quarter: 2021Q3

REPORT INFORMATION
  Report Type: Spontaneous
  Country: US (occurrence: US)
  Receive Date: 20210803
  Receipt Date: 20210803
  Transmission Date: 20211014
  Serious: No
  Sender: FDA-Public Use
  Company Number: None

PATIENT
  Age: 30 Year
  Sex: Male

DRUGS (2)
  1. TECFIDERA [Suspect]
     Active Substance: DIMETHYL FUMARATE
     Dates: start: 20210617, end: 20210720
  2. AVONEX [Concomitant]
     Active Substance: INTERFERON BETA-1A

REACTIONS (9)
  - Urticaria [None]
  - Decreased appetite [None]
  - Pruritus [None]
  - Rash [None]
  - Drug eruption [None]
  - Dizziness [None]
  - Myalgia [None]
  - Drug level decreased [None]
  - Hypokinesia [None]

NARRATIVE: CASE EVENT DATE: 20210701
